FAERS Safety Report 8042767-X (Version None)
Quarter: 2012Q1

REPORT INFORMATION
  Report Type: 
  Country: None (occurrence: None)
  Receive Date: 20120112
  Receipt Date: 20120110
  Transmission Date: 20120608
  Serious: Yes (Other)
  Sender: FDA-Public Use
  Company Number: US-ROCHE-783677

PATIENT
  Sex: Male
  Weight: 34.05 kg

DRUGS (8)
  1. PENTASA [Concomitant]
     Indication: CROHN'S DISEASE
  2. ACCUTANE [Suspect]
     Indication: ACNE
     Route: 065
  3. PREVACID [Concomitant]
     Indication: GASTROOESOPHAGEAL REFLUX DISEASE
  4. ACCUTANE [Suspect]
     Route: 065
     Dates: start: 19980101, end: 19990101
  5. REMICADE [Concomitant]
     Indication: COLITIS ULCERATIVE
  6. PREDNISONE TAB [Concomitant]
     Indication: CROHN'S DISEASE
  7. MERCAPTOPURINE [Concomitant]
  8. ACCUTANE [Suspect]
     Dates: start: 19980701, end: 19990901

REACTIONS (8)
  - INFLAMMATORY BOWEL DISEASE [None]
  - CROHN'S DISEASE [None]
  - STRESS [None]
  - ARTHRALGIA [None]
  - COLITIS ULCERATIVE [None]
  - OSTEOPENIA [None]
  - IRRITABLE BOWEL SYNDROME [None]
  - DEPRESSION [None]
